FAERS Safety Report 12500721 (Version 1)
Quarter: 2016Q2

REPORT INFORMATION
  Report Type: Spontaneous
  Country: FR (occurrence: FR)
  Receive Date: 20160627
  Receipt Date: 20160627
  Transmission Date: 20160815
  Serious: Yes (Life-Threatening, Hospitalization)
  Sender: FDA-Public Use
  Company Number: FR-MYLANLABS-2016M1026366

PATIENT

DRUGS (1)
  1. AMLODIPINE [Suspect]
     Active Substance: AMLODIPINE BESYLATE
     Indication: PRODUCT USED FOR UNKNOWN INDICATION
     Dosage: 3.6 G
     Route: 048

REACTIONS (4)
  - Toxicity to various agents [Recovering/Resolving]
  - Shock [Recovering/Resolving]
  - Overdose [Recovering/Resolving]
  - Hypotension [Recovering/Resolving]
